FAERS Safety Report 4289696-5 (Version None)
Quarter: 2004Q1

REPORT INFORMATION
  Report Type: 
  Country: None (occurrence: None)
  Receive Date: 20040126
  Receipt Date: 20031009
  Transmission Date: 20041129
  Serious: Yes (Other)
  Sender: FDA-Public Use
  Company Number: 348734

PATIENT
  Sex: Male

DRUGS (8)
  1. SAQUINAVIR (SAQUINAVIR MESYLATE) [Suspect]
     Indication: HIV INFECTION
  2. NELFINAVIR (NELFINAVIR) [Suspect]
     Indication: HIV INFECTION
  3. LIPINAVIR/TIRONAVIR [Suspect]
     Indication: HIV INFECTION
  4. LAMIVUDINE/ZIDOVUDINE [Suspect]
     Indication: HIV INFECTION
  5. NIVIRAPINE [Suspect]
     Indication: HIV INFECTION
  6. ZIDOVUDINE [Suspect]
     Indication: HIV INFECTION
  7. DIDANOSINE (DIDANOSINE) [Suspect]
     Indication: HIV INFECTION
  8. STAVUDINE [Suspect]
     Indication: HIV INFECTION

REACTIONS (1)
  - LIPODYSTROPHY ACQUIRED [None]
